FAERS Safety Report 9197147 (Version 2)
Quarter: 2013Q2

REPORT INFORMATION
  Report Type: Spontaneous
  Country: FR (occurrence: FR)
  Receive Date: 20130328
  Receipt Date: 20130425
  Transmission Date: 20140414
  Serious: No
  Sender: FDA-Public Use
  Company Number: FR-ROCHE-1207559

PATIENT
  Age: 64 Year
  Sex: Male
  Weight: 80 kg

DRUGS (3)
  1. ZELBORAF [Suspect]
     Indication: METASTATIC MALIGNANT MELANOMA
     Route: 048
     Dates: start: 20130212
  2. COVERAM [Concomitant]
     Indication: HYPERTENSION
     Dosage: 10 MG / 10 MG
     Route: 048
  3. TAKADOL [Concomitant]
     Indication: PAIN
     Route: 048

REACTIONS (4)
  - Gingival hypertrophy [Not Recovered/Not Resolved]
  - Gingival recession [Not Recovered/Not Resolved]
  - Oedema peripheral [Recovering/Resolving]
  - Oedema peripheral [Recovering/Resolving]
